FAERS Safety Report 16596783 (Version 2)
Quarter: 2019Q3

REPORT INFORMATION
  Report Type: Spontaneous
  Country: DE (occurrence: DE)
  Receive Date: 20190719
  Receipt Date: 20190805
  Transmission Date: 20191004
  Serious: Yes (Hospitalization)
  Sender: FDA-Public Use
  Company Number: DE-TORRENT-00014780

PATIENT
  Age: 35 Year
  Sex: Female

DRUGS (2)
  1. VENLAFAXIN [Suspect]
     Active Substance: VENLAFAXINE HYDROCHLORIDE
     Indication: PRODUCT USED FOR UNKNOWN INDICATION
     Dosage: NK MG, FIRST INTAKE ON 14.02.2018
     Dates: start: 20180214
  2. HYDROXYZIN [Concomitant]
     Indication: PRODUCT USED FOR UNKNOWN INDICATION
     Dosage: NK MG, 2 X D

REACTIONS (2)
  - Hyperventilation [Unknown]
  - Anxiety [Unknown]
